FAERS Safety Report 25807956 (Version 2)
Quarter: 2025Q3

REPORT INFORMATION
  Report Type: Spontaneous
  Country: US (occurrence: US)
  Receive Date: 20250916
  Receipt Date: 20250919
  Transmission Date: 20251021
  Serious: Yes (Other)
  Sender: LUNDBECK
  Company Number: US-LUNDBECK-DKLU4019182

PATIENT
  Age: 11 Month
  Sex: Female
  Weight: 7.7111 kg

DRUGS (3)
  1. SABRIL [Suspect]
     Active Substance: VIGABATRIN
     Indication: Infantile spasms
     Dosage: 10 MILLILITRE
     Dates: start: 202508
  2. SABRIL [Suspect]
     Active Substance: VIGABATRIN
     Dosage: 8 MILLILITRE
  3. SABRIL [Suspect]
     Active Substance: VIGABATRIN
     Dosage: 500 MILLIGRAM
     Dates: start: 202508

REACTIONS (3)
  - Pneumonia [Unknown]
  - Respiratory distress [Unknown]
  - Infection [Unknown]
